FAERS Safety Report 7465380-1 (Version None)
Quarter: 2011Q2

REPORT INFORMATION
  Report Type: 
  Country: None (occurrence: None)
  Receive Date: 20110505
  Receipt Date: 20110505
  Transmission Date: 20111010
  Serious: No
  Sender: FDA-Public Use
  Company Number: None

PATIENT
  Age: 13 Year
  Sex: Female
  Weight: 60 kg

DRUGS (1)
  1. TRILEPTAL [Suspect]
     Indication: CEREBRAL DISORDER
     Dosage: 1200 MG  TWICE DAILY PO
     Route: 048
     Dates: start: 20110210, end: 20110505

REACTIONS (10)
  - DIPLOPIA [None]
  - PYREXIA [None]
  - DEPRESSED LEVEL OF CONSCIOUSNESS [None]
  - SUICIDAL IDEATION [None]
  - SOMNOLENCE [None]
  - VISUAL IMPAIRMENT [None]
  - AGGRESSION [None]
  - HEADACHE [None]
  - THIRST [None]
  - FATIGUE [None]
